FAERS Safety Report 12902681 (Version 1)
Quarter: 2016Q4

REPORT INFORMATION
  Report Type: Spontaneous
  Country: US (occurrence: US)
  Receive Date: 20161102
  Receipt Date: 20161102
  Transmission Date: 20170207
  Serious: No
  Sender: FDA-Public Use
  Company Number: US-GLAXOSMITHKLINE-US2016160878

PATIENT
  Sex: Male

DRUGS (2)
  1. VENTOLIN HFA [Suspect]
     Active Substance: ALBUTEROL SULFATE
     Indication: CHRONIC OBSTRUCTIVE PULMONARY DISEASE
     Dosage: 2 PUFF(S), UNK
     Dates: start: 2013
  2. LISINOPRIL. [Concomitant]
     Active Substance: LISINOPRIL
     Dosage: 10 MG, QD

REACTIONS (9)
  - Conjunctivitis [Unknown]
  - Chronic obstructive pulmonary disease [Unknown]
  - Panic attack [Unknown]
  - Drug ineffective [Unknown]
  - Cough [Unknown]
  - Sputum increased [Unknown]
  - Dyspnoea [Unknown]
  - Intentional product use issue [Unknown]
  - Bronchitis [Not Recovered/Not Resolved]
